FAERS Safety Report 5411046-9 (Version None)
Quarter: 2007Q3

REPORT INFORMATION
  Report Type: 
  Country: None (occurrence: None)
  Receive Date: 20070713
  Receipt Date: 20070507
  Transmission Date: 20080115
  Serious: No
  Sender: FDA-Public Use
  Company Number: 2007SP001695

PATIENT
  Age: 53 Year
  Sex: Female
  Weight: 72.5755 kg

DRUGS (5)
  1. LUNESTA [Suspect]
     Indication: INSOMNIA
     Dosage: 2 MG; ORAL
     Route: 048
     Dates: start: 20070506
  2. ZOLOFT [Concomitant]
  3. CALCIUM [Concomitant]
  4. SINGULAIR [Concomitant]
  5. IBUPROFEN [Concomitant]

REACTIONS (1)
  - DYSGEUSIA [None]
